FAERS Safety Report 13227099 (Version 1)
Quarter: 2017Q1

REPORT INFORMATION
  Report Type: Spontaneous
  Country: US (occurrence: US)
  Receive Date: 20170213
  Receipt Date: 20170213
  Transmission Date: 20170428
  Serious: No
  Sender: FDA-Public Use
  Company Number: US-IGSA-GTI004587

PATIENT
  Age: 68 Year
  Sex: Male
  Weight: 82 kg

DRUGS (14)
  1. DIOVAN HCT [Concomitant]
     Active Substance: HYDROCHLOROTHIAZIDE\VALSARTAN
  2. TRADJENTA [Concomitant]
     Active Substance: LINAGLIPTIN
  3. PROLASTIN-C [Suspect]
     Active Substance: .ALPHA.1-PROTEINASE INHIBITOR HUMAN
     Indication: ALPHA-1 ANTI-TRYPSIN DEFICIENCY
     Route: 042
     Dates: start: 20160610, end: 20160826
  4. XIFAXAN [Concomitant]
     Active Substance: RIFAXIMIN
  5. CLOPIDOGREL BISULFATE. [Concomitant]
     Active Substance: CLOPIDOGREL BISULFATE
  6. LOPRESSOR [Concomitant]
     Active Substance: METOPROLOL TARTRATE
  7. NITROLINGUAL [Concomitant]
     Active Substance: NITROGLYCERIN
  8. LACTULOSE. [Concomitant]
     Active Substance: LACTULOSE
  9. CYCLOBENZAPRINE [Concomitant]
     Active Substance: CYCLOBENZAPRINE
  10. COLCHICINE. [Concomitant]
     Active Substance: COLCHICINE
  11. PROVENTIL HFA /00139501/ [Concomitant]
  12. VALIUM [Concomitant]
     Active Substance: DIAZEPAM
  13. SYMBICORT [Concomitant]
     Active Substance: BUDESONIDE\FORMOTEROL FUMARATE DIHYDRATE
  14. PANTOPRAZOLE SODIUM. [Concomitant]
     Active Substance: PANTOPRAZOLE SODIUM

REACTIONS (4)
  - Mood swings [Recovered/Resolved]
  - Headache [Recovered/Resolved]
  - Asthenia [Recovered/Resolved]
  - Irritability [Recovered/Resolved]

NARRATIVE: CASE EVENT DATE: 20160610
